FAERS Safety Report 15276123 (Version 17)
Quarter: 2023Q4

REPORT INFORMATION
  Report Type: Report from Study
  Country: CA (occurrence: CA)
  Receive Date: 20180814
  Receipt Date: 20231018
  Transmission Date: 20240110
  Serious: Yes (Hospitalization, Other)
  Sender: FDA-Public Use
  Company Number: PHHY2018CA064905

PATIENT
  Age: 54 Year
  Sex: Female

DRUGS (18)
  1. COSENTYX [Suspect]
     Active Substance: SECUKINUMAB
     Indication: Psoriasis
     Dosage: 300 MG, QMO
     Route: 058
     Dates: start: 20180315
  2. COSENTYX [Suspect]
     Active Substance: SECUKINUMAB
     Dosage: 300 MG, QW
     Route: 058
  3. COSENTYX [Suspect]
     Active Substance: SECUKINUMAB
     Dosage: 300 MG, QMO
     Route: 058
     Dates: start: 201807
  4. COSENTYX [Suspect]
     Active Substance: SECUKINUMAB
     Dosage: 300 MG, QMO
     Route: 058
     Dates: start: 20190521
  5. COSENTYX [Suspect]
     Active Substance: SECUKINUMAB
     Dosage: 300 MG, Q2W
     Route: 058
  6. CIPROFLOXACIN [Suspect]
     Active Substance: CIPROFLOXACIN
     Indication: Septic shock
     Dosage: UNK
     Route: 065
  7. METHOTREXATE [Concomitant]
     Active Substance: METHOTREXATE
     Indication: Product used for unknown indication
     Dosage: UNK
     Route: 065
  8. ENBREL [Concomitant]
     Active Substance: ETANERCEPT
     Indication: Product used for unknown indication
     Dosage: UNK
     Route: 065
  9. STELARA [Concomitant]
     Active Substance: USTEKINUMAB
     Indication: Product used for unknown indication
     Dosage: UNK
     Route: 065
  10. HUMIRA [Concomitant]
     Active Substance: ADALIMUMAB
     Indication: Product used for unknown indication
     Dosage: UNK
     Route: 065
  11. ULTRAVAC [Concomitant]
     Indication: Product used for unknown indication
     Dosage: UNK
     Route: 065
  12. BETAMETHASONE\CALCIPOTRIENE [Concomitant]
     Active Substance: BETAMETHASONE\CALCIPOTRIENE
     Indication: Product used for unknown indication
     Dosage: UNK
     Route: 065
  13. DOVONEX [Concomitant]
     Active Substance: CALCIPOTRIENE
     Indication: Product used for unknown indication
     Dosage: UNK
     Route: 065
  14. PROTOPIC [Concomitant]
     Active Substance: TACROLIMUS
     Indication: Product used for unknown indication
     Dosage: UNK
     Route: 065
  15. CLOBETASOL [Concomitant]
     Active Substance: CLOBETASOL
     Indication: Product used for unknown indication
     Dosage: UNK
     Route: 065
  16. BEESWAX [Concomitant]
     Active Substance: YELLOW WAX
     Indication: Product used for unknown indication
     Dosage: UNK
     Route: 065
  17. PSORALEN [Concomitant]
     Active Substance: PSORALEN
     Indication: Product used for unknown indication
     Dosage: UNK
     Route: 065
  18. CYCLOSPORINE [Concomitant]
     Active Substance: CYCLOSPORINE
     Indication: Product used for unknown indication
     Dosage: UNK
     Route: 065

REACTIONS (16)
  - Gallbladder rupture [Unknown]
  - Pathogen resistance [Unknown]
  - Septic shock [Unknown]
  - Postoperative wound infection [Unknown]
  - Abscess [Unknown]
  - Urticaria [Unknown]
  - Swelling [Unknown]
  - Skin plaque [Unknown]
  - Erythema [Unknown]
  - Pain of skin [Unknown]
  - Induration [Unknown]
  - Therapeutic product effect decreased [Unknown]
  - Paraesthesia [Unknown]
  - Pruritus [Unknown]
  - Skin exfoliation [Unknown]
  - Off label use [Unknown]

NARRATIVE: CASE EVENT DATE: 20180806
